FAERS Safety Report 15589476 (Version 2)
Quarter: 2018Q4

REPORT INFORMATION
  Report Type: Report from Study
  Country: HR (occurrence: HR)
  Receive Date: 20181106
  Receipt Date: 20181109
  Transmission Date: 20190205
  Serious: Yes (Other)
  Sender: FDA-Public Use
  Company Number: HR-ROCHE-2201513

PATIENT
  Age: 65 Year
  Sex: Male
  Weight: 116 kg

DRUGS (14)
  1. RAMIPRIL. [Concomitant]
     Active Substance: RAMIPRIL
     Dosage: HALF TABLET ONCE PER DAY
     Route: 048
     Dates: start: 20181015
  2. ATEZOLIZUMAB. [Suspect]
     Active Substance: ATEZOLIZUMAB
     Indication: MALIGNANT URINARY TRACT NEOPLASM
     Dosage: MOST RECENT DOSE OF ATEZOLIZUMAB (1200 MG) PRIOR TO ONSET OF HYPERGLYCAEMIA 24/SEP/2018
     Route: 042
     Dates: start: 20170616
  3. RAMIPRIL. [Concomitant]
     Active Substance: RAMIPRIL
     Indication: HYPERTENSION
     Route: 048
     Dates: start: 20171109, end: 20181014
  4. CLINDAMYCIN. [Concomitant]
     Active Substance: CLINDAMYCIN
     Indication: FOLLICULITIS
     Route: 061
     Dates: start: 20181022
  5. LEVOTHYROXINE. [Concomitant]
     Active Substance: LEVOTHYROXINE
     Route: 048
  6. ATEZOLIZUMAB. [Suspect]
     Active Substance: ATEZOLIZUMAB
     Route: 042
     Dates: start: 20181025
  7. KETOPROFEN. [Concomitant]
     Active Substance: KETOPROFEN
     Indication: OSTEOARTHRITIS
     Route: 048
     Dates: start: 20171030, end: 20181015
  8. TRAMADOL HYDROCHLORIDE. [Concomitant]
     Active Substance: TRAMADOL HYDROCHLORIDE
     Indication: OSTEOARTHRITIS
     Route: 048
     Dates: start: 20171030
  9. PARACETAMOL [Concomitant]
     Active Substance: ACETAMINOPHEN
     Route: 048
     Dates: start: 20171030
  10. CICLESONIDE [Concomitant]
     Active Substance: CICLESONIDE
     Route: 055
     Dates: start: 20171128, end: 20181015
  11. ALPRAZOLAM. [Concomitant]
     Active Substance: ALPRAZOLAM
     Route: 048
     Dates: start: 20181010
  12. SALBUTAMOL [Concomitant]
     Active Substance: ALBUTEROL
     Route: 055
     Dates: start: 20171128, end: 20181015
  13. AMOXICILLIN. [Concomitant]
     Active Substance: AMOXICILLIN
     Indication: FOLLICULITIS
     Route: 048
     Dates: start: 20181022
  14. ZOLPIDEM [Concomitant]
     Active Substance: ZOLPIDEM\ZOLPIDEM TARTRATE
     Route: 048
     Dates: start: 20181010

REACTIONS (1)
  - Type 2 diabetes mellitus [Recovered/Resolved]

NARRATIVE: CASE EVENT DATE: 20181015
